FAERS Safety Report 20458883 (Version 3)
Quarter: 2022Q4

REPORT INFORMATION
  Report Type: Spontaneous
  Country: MX (occurrence: MX)
  Receive Date: 20220211
  Receipt Date: 20221004
  Transmission Date: 20230113
  Serious: Yes (Other)
  Sender: FDA-Public Use
  Company Number: MX-NOVARTISPH-NVSC2022MX029744

PATIENT
  Sex: Female

DRUGS (1)
  1. RYDAPT [Suspect]
     Active Substance: MIDOSTAURIN
     Indication: Acute myeloid leukaemia
     Dosage: 50 MG, BID (Q12H)
     Route: 048
     Dates: start: 20211125, end: 20211209

REACTIONS (7)
  - Cardio-respiratory arrest [Unknown]
  - Cardiac failure acute [Unknown]
  - Pulmonary oedema [Unknown]
  - Palpitations [Unknown]
  - Chest discomfort [Unknown]
  - Oedema peripheral [Unknown]
  - Weight increased [Unknown]

NARRATIVE: CASE EVENT DATE: 20211101
